FAERS Safety Report 10686876 (Version 2)
Quarter: 2015Q1

REPORT INFORMATION
  Report Type: Spontaneous
  Country: TR (occurrence: TR)
  Receive Date: 20150102
  Receipt Date: 20150109
  Transmission Date: 20150720
  Serious: Yes (Life-Threatening, Hospitalization, Other)
  Sender: FDA-Public Use
  Company Number: TR-009507513-1412TUR013834

PATIENT
  Age: 59 Year
  Sex: Female
  Weight: 60 kg

DRUGS (1)
  1. INVANZ [Suspect]
     Active Substance: ERTAPENEM SODIUM
     Indication: URINARY TRACT INFECTION
     Dosage: DOSE: 1 G, FREQUENCY: UNKNOWN
     Route: 030
     Dates: start: 20141227, end: 20141227

REACTIONS (6)
  - Respiratory arrest [Recovered/Resolved]
  - Dizziness [Recovered/Resolved]
  - Pain [Unknown]
  - Cardiac arrest [Recovered/Resolved]
  - Wrong technique in drug usage process [Unknown]
  - Syncope [Recovered/Resolved]

NARRATIVE: CASE EVENT DATE: 20141227
